FAERS Safety Report 19736205 (Version 2)
Quarter: 2021Q4

REPORT INFORMATION
  Report Type: Report from Study
  Country: US (occurrence: US)
  Receive Date: 20210824
  Receipt Date: 20211027
  Transmission Date: 20220303
  Serious: Yes (Other)
  Sender: FDA-Public Use
  Company Number: NVSC2021US187579

PATIENT
  Age: 65 Year
  Sex: Male

DRUGS (1)
  1. COSENTYX [Suspect]
     Active Substance: SECUKINUMAB
     Indication: Psoriatic arthropathy
     Dosage: 300 MG/KG, QMO
     Route: 058
     Dates: start: 20170106, end: 20210816

REACTIONS (6)
  - Cellulitis [Unknown]
  - Ear swelling [Unknown]
  - Facial pain [Unknown]
  - Ear pain [Unknown]
  - Swelling face [Unknown]
  - Arthralgia [Unknown]

NARRATIVE: CASE EVENT DATE: 20210808
